FAERS Safety Report 6705332-X (Version None)
Quarter: 2010Q2

REPORT INFORMATION
  Report Type: 
  Country: None (occurrence: None)
  Receive Date: 20100501
  Receipt Date: 20100420
  Transmission Date: 20101027
  Serious: Yes (Hospitalization)
  Sender: FDA-Public Use
  Company Number: US-ELI_LILLY_AND_COMPANY-US201004000427

PATIENT
  Sex: Female
  Weight: 102.4 kg

DRUGS (3)
  1. FORTEO [Suspect]
     Indication: OSTEOPOROSIS
     Dosage: 20 UG, DAILY (1/D)
     Dates: start: 20100101
  2. ULTRAM [Concomitant]
  3. TYLENOL (CAPLET) [Concomitant]

REACTIONS (2)
  - MUSCULAR WEAKNESS [None]
  - NEPHROLITHIASIS [None]
